FAERS Safety Report 25649981 (Version 1)
Quarter: 2025Q3

REPORT INFORMATION
  Report Type: Spontaneous
  Country: US (occurrence: US)
  Receive Date: 20250806
  Receipt Date: 20250806
  Transmission Date: 20251020
  Serious: No
  Sender: INSUD PHARMA
  Company Number: US-INSUD PHARMA-2507US06116

PATIENT

DRUGS (3)
  1. SLYND [Suspect]
     Active Substance: DROSPIRENONE
     Indication: Contraception
     Dosage: UNK UNK, QD
     Route: 048
     Dates: start: 2025
  2. SLYND [Suspect]
     Active Substance: DROSPIRENONE
     Indication: Heavy menstrual bleeding
     Dosage: DOUBLED DOSE
     Route: 048
     Dates: start: 2025, end: 2025
  3. SLYND [Suspect]
     Active Substance: DROSPIRENONE
     Dosage: UNK UNK, QD
     Route: 048
     Dates: start: 2020, end: 2025

REACTIONS (3)
  - Intermenstrual bleeding [Not Recovered/Not Resolved]
  - Intentional product use issue [Unknown]
  - Product use in unapproved indication [Unknown]

NARRATIVE: CASE EVENT DATE: 20250601
